FAERS Safety Report 19313493 (Version 1)
Quarter: 2021Q2

REPORT INFORMATION
  Report Type: Spontaneous
  Country: US (occurrence: US)
  Receive Date: 20210527
  Receipt Date: 20210527
  Transmission Date: 20210717
  Serious: Yes (Other)
  Sender: FDA-Public Use
  Company Number: None

PATIENT
  Age: 61 Year
  Sex: Male
  Weight: 79.38 kg

DRUGS (5)
  1. DUOBRIL [Concomitant]
  2. SIMVASTATIN. [Concomitant]
     Active Substance: SIMVASTATIN
  3. TALTZ [Suspect]
     Active Substance: IXEKIZUMAB
     Indication: PSORIASIS
     Dosage: FREQUENCY: EVERY 4 WEEKS
     Route: 058
     Dates: start: 20210310, end: 20210524
  4. ASPIRIN. [Concomitant]
     Active Substance: ASPIRIN
  5. CEL ECOXIB [Concomitant]

REACTIONS (3)
  - Injection site swelling [None]
  - Injection site pruritus [None]
  - Injection site mass [None]

NARRATIVE: CASE EVENT DATE: 20210524
